FAERS Safety Report 22343831 (Version 1)
Quarter: 2023Q2

REPORT INFORMATION
  Report Type: Spontaneous
  Country: CZ (occurrence: CZ)
  Receive Date: 20230519
  Receipt Date: 20230519
  Transmission Date: 20230721
  Serious: Yes (Hospitalization, Other)
  Sender: FDA-Public Use
  Company Number: CZ-Accord-358648

PATIENT
  Sex: Male

DRUGS (2)
  1. IRINOTECAN [Suspect]
     Active Substance: IRINOTECAN
     Indication: Colorectal adenocarcinoma
     Dosage: TWO APPLICATIONS
     Dates: start: 201902, end: 202001
  2. PANITUMUMAB [Suspect]
     Active Substance: PANITUMUMAB
     Indication: Colorectal adenocarcinoma
     Dosage: TWO APPLICATIONS
     Dates: start: 201902, end: 202103

REACTIONS (2)
  - Rash [Unknown]
  - Hepatitis B [Recovered/Resolved]
